FAERS Safety Report 13868687 (Version 3)
Quarter: 2018Q1

REPORT INFORMATION
  Report Type: Spontaneous
  Country: US (occurrence: US)
  Receive Date: 20170815
  Receipt Date: 20180110
  Transmission Date: 20180508
  Serious: Yes (Other)
  Sender: FDA-Public Use
  Company Number: US-PFIZER INC-2017349388

PATIENT
  Age: 53 Year
  Sex: Male
  Weight: 69.17 kg

DRUGS (2)
  1. XANAX [Suspect]
     Active Substance: ALPRAZOLAM
     Indication: SLEEP DISORDER
  2. XANAX [Suspect]
     Active Substance: ALPRAZOLAM
     Indication: ANXIETY
     Dosage: 0.5 MG, 1X/DAY (AT NIGHT)

REACTIONS (4)
  - Agitation [Unknown]
  - Seizure [Unknown]
  - Overdose [Unknown]
  - Fear [Unknown]
